FAERS Safety Report 4718705-1 (Version None)
Quarter: 2005Q3

REPORT INFORMATION
  Report Type: 
  Country: None (occurrence: None)
  Receive Date: 20050720
  Receipt Date: 20050524
  Transmission Date: 20060218
  Serious: Yes (Other)
  Sender: FDA-Public Use
  Company Number: PHNR2005AU00906

PATIENT
  Age: 61 Year
  Sex: Female

DRUGS (4)
  1. ZOMETA [Suspect]
     Indication: MULTIPLE MYELOMA
     Dosage: 4 MG, QMO
     Dates: start: 20030901
  2. VALTREX [Concomitant]
  3. VORICONAZOLE [Concomitant]
  4. BACTRIM [Concomitant]

REACTIONS (5)
  - ASEPTIC NECROSIS BONE [None]
  - GINGIVAL EROSION [None]
  - IMPAIRED HEALING [None]
  - TOOTH EXTRACTION [None]
  - TOOTH FRACTURE [None]
